FAERS Safety Report 14131877 (Version 1)
Quarter: 2017Q4

REPORT INFORMATION
  Report Type: Spontaneous
  Country: US (occurrence: US)
  Receive Date: 20171026
  Receipt Date: 20171026
  Transmission Date: 20180321
  Serious: No
  Sender: FDA-Public Use
  Company Number: US-FRESENIUS MEDICAL CARE RENAL THERAPIES GROUP-FMC-1710-001238

PATIENT
  Age: 52 Year
  Sex: Male
  Weight: 75 kg

DRUGS (19)
  1. COREG [Concomitant]
     Active Substance: CARVEDILOL
  2. HYDROMORPHONE [Concomitant]
     Active Substance: HYDROMORPHONE
  3. NITROGLYCERINE [Concomitant]
     Active Substance: NITROGLYCERIN
  4. ASPRIN [Concomitant]
     Active Substance: ASPIRIN
  5. CALCITRIOL. [Concomitant]
     Active Substance: CALCITRIOL
  6. GENTAMICIN. [Concomitant]
     Active Substance: GENTAMICIN
  7. SIMVASTATIN. [Concomitant]
     Active Substance: SIMVASTATIN
  8. VELPHORO [Concomitant]
     Active Substance: FERRIC OXYHYDROXIDE
  9. OMEPRAZOLE. [Concomitant]
     Active Substance: OMEPRAZOLE
  10. FUROSEMIDE. [Concomitant]
     Active Substance: FUROSEMIDE
  11. COLCHICINE. [Concomitant]
     Active Substance: COLCHICINE
  12. CLONAZEPAM. [Concomitant]
     Active Substance: CLONAZEPAM
  13. MAGNESIUM OXIDE. [Concomitant]
     Active Substance: MAGNESIUM OXIDE
  14. ALLOPURINOL. [Concomitant]
     Active Substance: ALLOPURINOL
  15. SOMA [Concomitant]
     Active Substance: CARISOPRODOL
  16. DELFLEX WITH DEXTROSE 1.5% LOW MAGNESIUM LOW CALCIUM [Suspect]
     Active Substance: CALCIUM CHLORIDE\DEXTROSE\MAGNESIUM CHLORIDE\SODIUM CHLORIDE\SODIUM LACTATE
     Indication: END STAGE RENAL DISEASE
     Dosage: PER PDRN, THE PATIENT IS RECOVERED FROM THE REPORTED EVENT AND CONTINUES THERAPY WITH NO FURTHER IS
     Route: 033
     Dates: start: 20090401
  17. SENSIPAR [Concomitant]
     Active Substance: CINACALCET HYDROCHLORIDE
  18. FOLIC ACID. [Concomitant]
     Active Substance: FOLIC ACID
  19. ISORDIL [Concomitant]
     Active Substance: ISOSORBIDE DINITRATE

REACTIONS (2)
  - Abdominal distension [Recovered/Resolved]
  - Fluid overload [Recovered/Resolved]

NARRATIVE: CASE EVENT DATE: 20171011
